FAERS Safety Report 11910208 (Version 1)
Quarter: 2016Q1

REPORT INFORMATION
  Report Type: Spontaneous
  Country: US (occurrence: None)
  Receive Date: 20160111
  Receipt Date: 20160111
  Transmission Date: 20160526
  Serious: Yes (Hospitalization)
  Sender: FDA-Public Use
  Company Number: None

PATIENT
  Age: 64 Year
  Sex: Female
  Weight: 59.88 kg

DRUGS (1)
  1. PASIREOTIDE [Suspect]
     Active Substance: PASIREOTIDE
     Indication: HEPATIC CANCER
     Route: 030
     Dates: start: 20150630, end: 20151020

REACTIONS (5)
  - Deep vein thrombosis [None]
  - Chest pain [None]
  - Pyrexia [None]
  - Cough [None]
  - Malaise [None]

NARRATIVE: CASE EVENT DATE: 20160101
